FAERS Safety Report 18586719 (Version 1)
Quarter: 2020Q4

REPORT INFORMATION
  Report Type: Spontaneous
  Country: US (occurrence: US)
  Receive Date: 20201207
  Receipt Date: 20201207
  Transmission Date: 20210114
  Serious: Yes (Other)
  Sender: FDA-Public Use
  Company Number: US-SA-2020SA343701

PATIENT

DRUGS (11)
  1. PREGABALIN. [Suspect]
     Active Substance: PREGABALIN
     Dosage: 75 UNK
     Route: 048
  2. LISINOPRIL HCT [HYDROCHLOROTHIAZIDE;LISINOPRIL] [Concomitant]
     Active Substance: HYDROCHLOROTHIAZIDE\LISINOPRIL
     Indication: BLOOD PRESSURE MEASUREMENT
     Dosage: UNK UNK, QD (20-25MG ONCE DAILY)
  3. KLONOPIN [Concomitant]
     Active Substance: CLONAZEPAM
     Indication: INSOMNIA
  4. KLONOPIN [Concomitant]
     Active Substance: CLONAZEPAM
     Indication: POST-TRAUMATIC STRESS DISORDER
     Dosage: 1 MG, QD (AT BED TIME)
  5. PREGABALIN. [Suspect]
     Active Substance: PREGABALIN
     Dosage: 300 MG, BID
     Route: 048
  6. PHENERGAN [Concomitant]
     Active Substance: PROMETHAZINE HYDROCHLORIDE
     Indication: VOMITING
     Dosage: 25 MG, BID (TAKES 25MG TWICE A DAY WITH THE NORCO)
  7. AMBIEN [Suspect]
     Active Substance: ZOLPIDEM TARTRATE
     Indication: INSOMNIA
     Dosage: 12.5 MG, QD (AT BED TIME)
  8. TIZANIDINE. [Concomitant]
     Active Substance: TIZANIDINE
     Indication: BACK INJURY
     Dosage: 4 MG, BID
  9. KLONOPIN [Concomitant]
     Active Substance: CLONAZEPAM
     Indication: PANIC ATTACK
  10. METOPROLOL. [Concomitant]
     Active Substance: METOPROLOL
     Dosage: 12.5 MG, BID
  11. NORCO [Concomitant]
     Active Substance: ACETAMINOPHEN\HYDROCODONE BITARTRATE
     Indication: BACK INJURY
     Dosage: 7.5 MG, QD

REACTIONS (30)
  - Abdominal pain upper [Unknown]
  - Dysphemia [Unknown]
  - Muscle atrophy [Unknown]
  - Lack of spontaneous speech [Unknown]
  - Nail dystrophy [Unknown]
  - Pain [Unknown]
  - Gastrointestinal motility disorder [Unknown]
  - Tooth loss [Unknown]
  - Tinnitus [Unknown]
  - Malaise [Unknown]
  - Anorgasmia [Unknown]
  - Skeletal injury [Unknown]
  - Feeling cold [Unknown]
  - Hyperhidrosis [Unknown]
  - Mood swings [Unknown]
  - Off label use [Unknown]
  - Loss of dreaming [Unknown]
  - Alopecia [Unknown]
  - Ageusia [Unknown]
  - Dyspnoea [Unknown]
  - Depression [Unknown]
  - Anxiety [Unknown]
  - Visual impairment [Unknown]
  - Urinary tract infection [Unknown]
  - Anaemia [Unknown]
  - Memory impairment [Unknown]
  - Drug ineffective [Unknown]
  - Seizure [Unknown]
  - Decreased interest [Unknown]
  - Insomnia [Unknown]

NARRATIVE: CASE EVENT DATE: 201907
